FAERS Safety Report 15096572 (Version 1)
Quarter: 2018Q2

REPORT INFORMATION
  Report Type: Spontaneous
  Country: US (occurrence: US)
  Receive Date: 20180610
  Receipt Date: 20180610
  Transmission Date: 20180711
  Serious: No
  Sender: FDA-Public Use
  Company Number: None

PATIENT
  Age: 25 Year
  Sex: Female
  Weight: 68.49 kg

DRUGS (1)
  1. NEXPLANON [Suspect]
     Active Substance: ETONOGESTREL
     Dates: start: 20180606, end: 20180608

REACTIONS (6)
  - Abdominal pain [None]
  - Nausea [None]
  - Dyspareunia [None]
  - Vulvovaginal pain [None]
  - Mood altered [None]
  - Dizziness [None]

NARRATIVE: CASE EVENT DATE: 20180608
